FAERS Safety Report 10736970 (Version 1)
Quarter: 2015Q1

REPORT INFORMATION
  Report Type: Spontaneous
  Country: US (occurrence: None)
  Receive Date: 20150123
  Receipt Date: 20150123
  Transmission Date: 20150721
  Serious: Yes (Hospitalization, Other)
  Sender: FDA-Public Use
  Company Number: None

PATIENT
  Age: 80 Year
  Sex: Male
  Weight: 93.5 kg

DRUGS (13)
  1. ACETAMINOPHEN. [Concomitant]
     Active Substance: ACETAMINOPHEN
  2. PLAVIX [Concomitant]
     Active Substance: CLOPIDOGREL BISULFATE
  3. ALBUTEROL-IPRATROPIUM (COMBIVENT) [Concomitant]
  4. RANITIDINE (ZANTAC) [Concomitant]
  5. SIMVASTATIN (ZOCOR) [Concomitant]
  6. CHOLECALCIFEROL [Concomitant]
     Active Substance: CHOLECALCIFEROL
  7. WARFARIN [Suspect]
     Active Substance: WARFARIN
     Indication: ATRIAL FIBRILLATION
     Route: 048
  8. MULTIPLE VITAMIN (MULTIVITAMINS PO) [Concomitant]
  9. LEVOFLOXACIN 500 MG [Suspect]
     Active Substance: LEVOFLOXACIN
     Indication: THERAPEUTIC PROCEDURE
     Dosage: 1 DOSE QD ORAL
     Route: 048
  10. HYDROCORTISONE (ANUSOL-HC) [Concomitant]
  11. METOPROLOL (TOPROL-XL) [Concomitant]
  12. LISINOPRIL-HYDROCHLOROTHIAZIDE (PRINZIDE, ZESTORETIC) [Concomitant]
  13. TERAZOSIN (HYTRIN) [Concomitant]

REACTIONS (7)
  - Haematuria [None]
  - Asthenia [None]
  - Suprapubic pain [None]
  - Fatigue [None]
  - Abdominal pain lower [None]
  - Urinary retention [None]
  - Muscle spasms [None]

NARRATIVE: CASE EVENT DATE: 20140113
